FAERS Safety Report 19054605 (Version 1)
Quarter: 2021Q1

REPORT INFORMATION
  Report Type: Other
  Country: RO (occurrence: RO)
  Receive Date: 20210325
  Receipt Date: 20210325
  Transmission Date: 20210420
  Serious: Yes (Other)
  Sender: FDA-Public Use
  Company Number: RO-CELLTRION INC.-2021RO003790

PATIENT

DRUGS (5)
  1. DOCETAXEL. [Suspect]
     Active Substance: DOCETAXEL
     Indication: BREAST CANCER METASTATIC
     Dosage: 75 MG/KG EVERY 3 WEEK (MOST RECENT DOSE PRIOR TO AE 24/OCT/2019)
     Route: 042
     Dates: start: 20190206
  2. TRASTUZUMAB (UNKNOWN) [Suspect]
     Active Substance: TRASTUZUMAB
     Indication: BREAST CANCER METASTATIC
     Dosage: 6 MG/M2 EVERY 3 WEEKS (MOST RECENT DOSE PRIOR TO AE 21/JAN/2020)
     Route: 041
     Dates: start: 20190206
  3. TRASTUZUMAB EMTANSINE [Suspect]
     Active Substance: ADO-TRASTUZUMAB EMTANSINE
     Indication: BREAST CANCER METASTATIC
     Dosage: 220 MG/KG EVERY 3 WEEK
     Route: 042
     Dates: start: 20200211
  4. PERTUZUMAB. [Suspect]
     Active Substance: PERTUZUMAB
     Indication: BREAST CANCER METASTATIC
     Dosage: 420 MG EVERY 3 WEEK (MOST RECENT DOSE PRIOR TO AE 21/JAN/2020)
     Route: 042
     Dates: start: 20190206
  5. NEBIVOLOLUM [Concomitant]
     Active Substance: NEBIVOLOL
     Dosage: ONGOING = CHECKED

REACTIONS (1)
  - Neurotoxicity [Recovered/Resolved]

NARRATIVE: CASE EVENT DATE: 20191114
